FAERS Safety Report 8027725-3 (Version None)
Quarter: 2012Q1

REPORT INFORMATION
  Report Type: 
  Country: None (occurrence: None)
  Receive Date: 20120104
  Receipt Date: 20111219
  Transmission Date: 20120608
  Serious: Yes (Hospitalization)
  Sender: FDA-Public Use
  Company Number: LTI2011A00323

PATIENT
  Age: 62 Year
  Sex: Male

DRUGS (1)
  1. ACTOS [Suspect]
     Indication: TYPE 2 DIABETES MELLITUS
     Dosage: ORAL
     Route: 048
     Dates: start: 20051101, end: 20080101

REACTIONS (6)
  - HYDRONEPHROSIS [None]
  - POLLAKIURIA [None]
  - BLADDER CANCER [None]
  - HAEMATURIA [None]
  - ANAEMIA [None]
  - RECTAL HAEMORRHAGE [None]
